FAERS Safety Report 7601215-1 (Version None)
Quarter: 2011Q3

REPORT INFORMATION
  Report Type: 
  Country: None (occurrence: None)
  Receive Date: 20110711
  Receipt Date: 20110630
  Transmission Date: 20111222
  Serious: Yes (Other)
  Sender: FDA-Public Use
  Company Number: IT-GLAXOSMITHKLINE-B0731798A

PATIENT

DRUGS (1)
  1. LAPATINIB [Suspect]
     Indication: BREAST CANCER METASTATIC
     Route: 065
     Dates: start: 20101001, end: 20101014

REACTIONS (3)
  - FEBRILE CONVULSION [None]
  - DECREASED APPETITE [None]
  - VOMITING [None]
